FAERS Safety Report 17354379 (Version 1)
Quarter: 2020Q1

REPORT INFORMATION
  Report Type: Spontaneous
  Country: ES (occurrence: ES)
  Receive Date: 20200131
  Receipt Date: 20200131
  Transmission Date: 20200409
  Serious: Yes (Hospitalization)
  Sender: FDA-Public Use
  Company Number: ES-NOVOPROD-709159

PATIENT
  Age: 18 Year
  Sex: Male

DRUGS (3)
  1. NOVORAPID [Suspect]
     Active Substance: INSULIN ASPART
     Indication: TYPE 1 DIABETES MELLITUS
     Dosage: 12 IU, TID (12UI AT BREAKFAST, 12UI AT DINNER, 12UI AT LUNCH)
     Route: 065
     Dates: start: 20181219
  2. LANTUS [Suspect]
     Active Substance: INSULIN GLARGINE
     Indication: TYPE 1 DIABETES MELLITUS
     Dosage: 45 IU, QD AT DINNER
     Route: 065
     Dates: start: 20190123, end: 20191111
  3. LANTUS [Suspect]
     Active Substance: INSULIN GLARGINE
     Dosage: 34 IU, QD AT DINNER
     Route: 065
     Dates: start: 20191111

REACTIONS (1)
  - Diabetic ketoacidosis [Recovered/Resolved]

NARRATIVE: CASE EVENT DATE: 20191109
